FAERS Safety Report 6938836-5 (Version None)
Quarter: 2010Q3

REPORT INFORMATION
  Report Type: 
  Country: None (occurrence: None)
  Receive Date: 20100824
  Receipt Date: 20100812
  Transmission Date: 20110219
  Serious: Yes (Death)
  Sender: FDA-Public Use
  Company Number: JP-PFIZER INC-2010098805

PATIENT
  Age: 62 Year
  Sex: Male

DRUGS (2)
  1. SILDENAFIL CITRATE [Suspect]
     Dosage: 15 MG, UNK
     Route: 048
     Dates: start: 20100722, end: 20100729
  2. SILDENAFIL CITRATE [Suspect]
     Dosage: 30 MG, UNK
     Route: 048
     Dates: start: 20100730, end: 20100802

REACTIONS (1)
  - INTERSTITIAL LUNG DISEASE [None]
